FAERS Safety Report 19493220 (Version 5)
Quarter: 2022Q1

REPORT INFORMATION
  Report Type: Other
  Country: US (occurrence: None)
  Receive Date: 20210705
  Receipt Date: 20220313
  Transmission Date: 20220424
  Serious: Yes (Other)
  Sender: FDA-Public Use
  Company Number: US-ROCHE-2861652

PATIENT
  Sex: Female

DRUGS (14)
  1. ACTEMRA [Suspect]
     Active Substance: TOCILIZUMAB
     Indication: Giant cell arteritis
     Route: 058
     Dates: start: 20210709
  2. ACTEMRA [Suspect]
     Active Substance: TOCILIZUMAB
  3. ACTEMRA [Suspect]
     Active Substance: TOCILIZUMAB
  4. COLACE [Concomitant]
     Active Substance: DOCUSATE SODIUM
  5. CALCITONIN [Concomitant]
     Active Substance: CALCITONIN
  6. CLOBETASOL [Concomitant]
     Active Substance: CLOBETASOL
  7. CLONIDINE [Concomitant]
     Active Substance: CLONIDINE
  8. DIVALPROEX SODIUM [Concomitant]
     Active Substance: DIVALPROEX SODIUM
  9. HYDRALAZINE [Concomitant]
     Active Substance: HYDRALAZINE HYDROCHLORIDE
  10. HYDROCODONE [Concomitant]
     Active Substance: HYDROCODONE
  11. LEVOTHYROXINE [Concomitant]
     Active Substance: LEVOTHYROXINE
  12. MIRALAX [Concomitant]
     Active Substance: POLYETHYLENE GLYCOL 3350
  13. NADOLOL [Concomitant]
     Active Substance: NADOLOL
  14. PREDNISONE [Concomitant]
     Active Substance: PREDNISONE

REACTIONS (6)
  - Blindness unilateral [Unknown]
  - Fall [Unknown]
  - Spinal fracture [Unknown]
  - Confusional state [Unknown]
  - Visual impairment [Unknown]
  - Back pain [Unknown]
